FAERS Safety Report 21122384 (Version 2)
Quarter: 2022Q3

REPORT INFORMATION
  Report Type: Spontaneous
  Country: US (occurrence: US)
  Receive Date: 20220723
  Receipt Date: 20220728
  Transmission Date: 20221027
  Serious: Yes (Life-Threatening, Hospitalization, Other)
  Sender: FDA-Public Use
  Company Number: US-drreddys-SPO/USA/22/0152449

PATIENT
  Age: 43 Year
  Sex: Male
  Weight: 106 kg

DRUGS (1)
  1. HEPARIN SODIUM [Suspect]
     Active Substance: HEPARIN SODIUM
     Indication: Prophylaxis
     Route: 058

REACTIONS (2)
  - Haemoglobin decreased [Recovered/Resolved]
  - Lower gastrointestinal haemorrhage [Recovered/Resolved]
